FAERS Safety Report 17084555 (Version 2)
Quarter: 2020Q1

REPORT INFORMATION
  Report Type: Report from Study
  Country: JP (occurrence: JP)
  Receive Date: 20191127
  Receipt Date: 20200219
  Transmission Date: 20200409
  Serious: No
  Sender: FDA-Public Use
  Company Number: JP-GILEAD-2019-0439851

PATIENT
  Age: 25 Year
  Sex: Male

DRUGS (6)
  1. EMTRICITABINE/TENOFOVIR ALAFENAMIDE [Suspect]
     Active Substance: EMTRICITABINE\TENOFOVIR
     Indication: HIV INFECTION
     Dosage: 1 DOSAGE FORM, QD
     Route: 048
     Dates: start: 20171002, end: 20181028
  2. NORVIR [Concomitant]
     Active Substance: RITONAVIR
     Indication: HIV INFECTION
     Dosage: 100 MG
     Route: 048
     Dates: end: 20181028
  3. EMTRICITABINE/TENOFOVIR ALAFENAMIDE [Suspect]
     Active Substance: EMTRICITABINE\TENOFOVIR
     Indication: HIV INFECTION
     Dosage: 1 DOSAGE FORM, QD
     Route: 048
     Dates: start: 20181029
  4. PREZISTANAIVE [Concomitant]
     Active Substance: DARUNAVIR
     Indication: HIV INFECTION
     Dosage: 800 MG, QD
     Route: 048
     Dates: end: 20181028
  5. URSODEOXYCHOLIC ACID [Concomitant]
     Active Substance: URSODIOL
  6. TIVICAY [Suspect]
     Active Substance: DOLUTEGRAVIR SODIUM
     Indication: HIV INFECTION
     Dosage: 1 DOSAGE FORM, QD
     Route: 048
     Dates: start: 20181029

REACTIONS (2)
  - Anogenital warts [Recovering/Resolving]
  - Glucose tolerance impaired [Not Recovered/Not Resolved]

NARRATIVE: CASE EVENT DATE: 20190128
